FAERS Safety Report 6157523-7 (Version None)
Quarter: 2009Q2

REPORT INFORMATION
  Report Type: 
  Country: None (occurrence: None)
  Receive Date: 20090414
  Receipt Date: 20090404
  Transmission Date: 20091009
  Serious: Yes (Other)
  Sender: FDA-Public Use
  Company Number: US-1169177

PATIENT
  Sex: Female

DRUGS (1)
  1. TRIAMCINOLONE ACETONIDE [Suspect]
     Dosage: INTRAOCULAR
     Route: 031
     Dates: start: 20090402, end: 20090402

REACTIONS (1)
  - ENDOPHTHALMITIS [None]
